FAERS Safety Report 6319888-2 (Version None)
Quarter: 2009Q3

REPORT INFORMATION
  Report Type: 
  Country: None (occurrence: None)
  Receive Date: 20090822
  Receipt Date: 20081009
  Transmission Date: 20100115
  Serious: No
  Sender: FDA-Public Use
  Company Number: US-ABBOTT-08P-163-0480838-00

PATIENT
  Sex: Female

DRUGS (5)
  1. NIASPAN [Suspect]
     Indication: HYPERCHOLESTEROLAEMIA
     Route: 048
     Dates: start: 20080901, end: 20080924
  2. PRINZIDE [Concomitant]
     Indication: DRUG USE FOR UNKNOWN INDICATION
  3. ESTROGENS CONJUGATED [Concomitant]
     Indication: DRUG USE FOR UNKNOWN INDICATION
  4. INEGY [Concomitant]
     Indication: DRUG USE FOR UNKNOWN INDICATION
  5. LEVOTHYROXINE SODIUM [Concomitant]
     Indication: DRUG USE FOR UNKNOWN INDICATION

REACTIONS (7)
  - BURNING SENSATION [None]
  - CHILLS [None]
  - EAR PAIN [None]
  - FLUSHING [None]
  - HEADACHE [None]
  - PALPITATIONS [None]
  - PARAESTHESIA [None]
